FAERS Safety Report 8371602-5 (Version None)
Quarter: 2012Q2

REPORT INFORMATION
  Report Type: 
  Country: None (occurrence: None)
  Receive Date: 20120518
  Receipt Date: 20120508
  Transmission Date: 20120825
  Serious: No
  Sender: FDA-Public Use
  Company Number: US-ASTRAZENECA-2012SE25107

PATIENT
  Age: 90 Year
  Sex: Female

DRUGS (1)
  1. PULMICORT FLEXHALER [Suspect]
     Indication: ASTHMA
     Dosage: 180 MCG, 1 PUFF TWO TIMES A DAY
     Route: 055

REACTIONS (2)
  - DRUG INEFFECTIVE [None]
  - DYSPNOEA [None]
